FAERS Safety Report 8107937-0 (Version None)
Quarter: 2012Q1

REPORT INFORMATION
  Report Type: 
  Country: None (occurrence: None)
  Receive Date: 20120202
  Receipt Date: 20120126
  Transmission Date: 20120608
  Serious: Yes (Other)
  Sender: FDA-Public Use
  Company Number: RU-MERCK-1201USA03319

PATIENT
  Age: 74 Year
  Sex: Male

DRUGS (2)
  1. PROSCAR [Suspect]
     Indication: PROSTATIC ADENOMA
     Route: 048
     Dates: start: 20110701, end: 20111201
  2. BETOPTIC [Concomitant]
     Indication: GLAUCOMA
     Route: 047
     Dates: start: 20100101

REACTIONS (1)
  - BLOOD PRESSURE INCREASED [None]
